FAERS Safety Report 7972909 (Version 3)
Quarter: 2015Q4

REPORT INFORMATION
  Report Type: Spontaneous
  Country: NL (occurrence: NL)
  Receive Date: 20110603
  Receipt Date: 20151124
  Transmission Date: 20160305
  Serious: Yes (Hospitalization, Other)
  Sender: FDA-Public Use
  Company Number: NL-JNJFOC-20110510188

PATIENT
  Sex: Female

DRUGS (14)
  1. ACENOCOUMAROL [Concomitant]
     Active Substance: ACENOCOUMAROL
     Route: 048
  2. PERINDOPRIL ERBUMINE. [Concomitant]
     Active Substance: PERINDOPRIL ERBUMINE
     Route: 048
  3. PARACETAMOL [Concomitant]
     Active Substance: ACETAMINOPHEN
     Route: 048
  4. ANASTROZOL [Concomitant]
     Active Substance: ANASTROZOLE
     Route: 048
  5. METOPROLOL [Concomitant]
     Active Substance: METOPROLOL
     Route: 048
  6. RISPERDAL [Suspect]
     Active Substance: RISPERIDONE
     Indication: PRODUCT USED FOR UNKNOWN INDICATION
     Route: 048
  7. RISPERIDONE. [Suspect]
     Active Substance: RISPERIDONE
     Indication: PRODUCT USED FOR UNKNOWN INDICATION
     Route: 048
  8. RISPERDAL [Suspect]
     Active Substance: RISPERIDONE
     Indication: PRODUCT USED FOR UNKNOWN INDICATION
     Route: 048
  9. VASELINE PURE [Concomitant]
     Active Substance: PETROLATUM
     Route: 003
  10. DIVISUN [Concomitant]
     Dosage: 800 IE
     Route: 048
  11. PANTOPRAZOL [Concomitant]
     Active Substance: PANTOPRAZOLE SODIUM
     Route: 048
  12. OXAZEPAM. [Concomitant]
     Active Substance: OXAZEPAM
     Route: 048
  13. NAPROXEN. [Concomitant]
     Active Substance: NAPROXEN
     Route: 065
  14. MIRTAZAPINE. [Concomitant]
     Active Substance: MIRTAZAPINE
     Route: 048

REACTIONS (10)
  - Pneumonia aspiration [Recovering/Resolving]
  - Hypokalaemia [Recovering/Resolving]
  - Parkinsonism [Unknown]
  - Accidental overdose [Recovering/Resolving]
  - Hyperhidrosis [Unknown]
  - Hypernatraemia [Recovering/Resolving]
  - Depressed level of consciousness [Recovering/Resolving]
  - Respiration abnormal [Unknown]
  - Dysphagia [Unknown]
  - Somnolence [Recovering/Resolving]
